FAERS Safety Report 23650519 (Version 1)
Quarter: 2024Q1

REPORT INFORMATION
  Report Type: Spontaneous
  Country: US (occurrence: None)
  Receive Date: 20240320
  Receipt Date: 20240320
  Transmission Date: 20240410
  Serious: No
  Sender: FDA-Public Use
  Company Number: US-ROCHE-3449659

PATIENT
  Sex: Female

DRUGS (1)
  1. VABYSMO [Suspect]
     Active Substance: FARICIMAB\FARICIMAB-SVOA
     Indication: Neovascular age-related macular degeneration
     Dosage: =
     Route: 050
     Dates: start: 20230927

REACTIONS (3)
  - Herpes virus infection [Unknown]
  - Blister [Unknown]
  - Off label use [Unknown]

NARRATIVE: CASE EVENT DATE: 20230927
